FAERS Safety Report 8269856-9 (Version None)
Quarter: 2012Q2

REPORT INFORMATION
  Report Type: 
  Country: None (occurrence: None)
  Receive Date: 20120410
  Receipt Date: 20120329
  Transmission Date: 20120825
  Serious: Yes (Other)
  Sender: FDA-Public Use
  Company Number: CH-JNJFOC-20120204713

PATIENT
  Age: 60 Year
  Sex: Female

DRUGS (5)
  1. METHOTREXATE [Suspect]
     Indication: RHEUMATOID ARTHRITIS
     Route: 048
     Dates: start: 20020101, end: 20060801
  2. METHOTREXATE [Suspect]
     Route: 042
     Dates: start: 20060101, end: 20070801
  3. ARAVA [Suspect]
     Indication: RHEUMATOID ARTHRITIS
     Dates: start: 20070529, end: 20120131
  4. REMICADE [Suspect]
     Indication: RHEUMATOID ARTHRITIS
     Route: 042
     Dates: start: 20080429, end: 20120127
  5. LEVOTHYROXINE SODIUM [Concomitant]
     Dates: start: 20050101

REACTIONS (2)
  - PULMONARY EMBOLISM [None]
  - NON-HODGKIN'S LYMPHOMA [None]
